FAERS Safety Report 6924175 (Version 2)
Quarter: 2013Q2

REPORT INFORMATION
  Report Type: Spontaneous
  Country: US (occurrence: US)
  Receive Date: 20090227
  Receipt Date: 20130619
  Transmission Date: 20140414
  Serious: Yes (Life-Threatening, Hospitalization, Congenital Anomaly)
  Sender: FDA-Public Use
  Company Number: US-RB-000234-08

PATIENT
  Age: 0 None
  Sex: Male

DRUGS (2)
  1. SUBUTEX [Suspect]
     Indication: DRUG DEPENDENCE
     Route: 064
     Dates: start: 20070309, end: 20071203
  2. SUBOXONE [Suspect]
     Indication: DRUG DEPENDENCE
     Route: 064
     Dates: start: 200703, end: 20070308

REACTIONS (4)
  - Foetal exposure during pregnancy [Recovered/Resolved]
  - Atrial septal defect [Recovered/Resolved]
  - Cardiac murmur [Recovered/Resolved]
  - Low birth weight baby [Recovered/Resolved]
